FAERS Safety Report 14430511 (Version 1)
Quarter: 2018Q1

REPORT INFORMATION
  Report Type: Spontaneous
  Country: US (occurrence: US)
  Receive Date: 20180123
  Receipt Date: 20180123
  Transmission Date: 20180509
  Serious: Yes (Hospitalization)
  Sender: FDA-Public Use
  Company Number: None

PATIENT
  Age: 10 Year
  Sex: Male
  Weight: 44.55 kg

DRUGS (7)
  1. ASMANEX INHALER [Concomitant]
  2. AZITHROMYCIN ANHYDROUS. [Concomitant]
     Active Substance: AZITHROMYCIN ANHYDROUS
  3. ABILIFY [Concomitant]
     Active Substance: ARIPIPRAZOLE
  4. TRILEPTAL [Concomitant]
     Active Substance: OXCARBAZEPINE
  5. OSELTAMIVIR PHOSPHATE CAPSULE USP, [Suspect]
     Active Substance: OSELTAMIVIR PHOSPHATE
     Indication: INFLUENZA
     Dosage: ?          QUANTITY:1 CAPSULE(S);?
     Route: 048
     Dates: start: 20180121, end: 20180121
  6. ALBUTEROL. [Concomitant]
     Active Substance: ALBUTEROL
  7. MELATONIN [Concomitant]
     Active Substance: MELATONIN

REACTIONS (5)
  - Hallucination [None]
  - Musculoskeletal stiffness [None]
  - Grunting [None]
  - Unresponsive to stimuli [None]
  - Drooling [None]

NARRATIVE: CASE EVENT DATE: 20180121
